FAERS Safety Report 13735716 (Version 1)
Quarter: 2017Q3

REPORT INFORMATION
  Report Type: Spontaneous
  Country: US (occurrence: US)
  Receive Date: 20170708
  Receipt Date: 20170708
  Transmission Date: 20171127
  Serious: Yes (Hospitalization)
  Sender: FDA-Public Use
  Company Number: None

PATIENT
  Age: 70 Year
  Sex: Male
  Weight: 100.3 kg

DRUGS (12)
  1. LEVEMIR [Concomitant]
     Active Substance: INSULIN DETEMIR
  2. VITAMIN D3 [Concomitant]
     Active Substance: CHOLECALCIFEROL
  3. FLECAINIDE [Concomitant]
     Active Substance: FLECAINIDE
  4. NEXIUM [Concomitant]
     Active Substance: ESOMEPRAZOLE MAGNESIUM
  5. LOSARTAN. [Concomitant]
     Active Substance: LOSARTAN
  6. METOPROLOL ER SUCCINATE [Concomitant]
     Active Substance: METOPROLOL SUCCINATE
  7. XARELTO [Suspect]
     Active Substance: RIVAROXABAN
     Indication: THROMBOSIS PROPHYLAXIS
     Dosage: ?          OTHER STRENGTH:MG;QUANTITY:30 TABLET(S);?
     Route: 048
     Dates: start: 20170202, end: 20170505
  8. ROSUVASTATIN CALCIUM. [Concomitant]
     Active Substance: ROSUVASTATIN CALCIUM
  9. XARELTO [Suspect]
     Active Substance: RIVAROXABAN
     Indication: ATRIAL FIBRILLATION
     Dosage: ?          OTHER STRENGTH:MG;QUANTITY:30 TABLET(S);?
     Route: 048
     Dates: start: 20170202, end: 20170505
  10. AMLODIPINE BESYLATE. [Concomitant]
     Active Substance: AMLODIPINE BESYLATE
  11. TRAMADOL. [Concomitant]
     Active Substance: TRAMADOL
  12. JANUMET XR [Concomitant]
     Active Substance: METFORMIN HYDROCHLORIDE\SITAGLIPTIN PHOSPHATE

REACTIONS (5)
  - Cerebrovascular accident [None]
  - Musculoskeletal disorder [None]
  - Subarachnoid haemorrhage [None]
  - Grip strength decreased [None]
  - Paralysis [None]

NARRATIVE: CASE EVENT DATE: 20170505
